FAERS Safety Report 9236579 (Version 1)
Quarter: 2013Q2

REPORT INFORMATION
  Report Type: Report from Study
  Country: CA (occurrence: CA)
  Receive Date: 20130417
  Receipt Date: 20130417
  Transmission Date: 20140414
  Serious: Yes (Other)
  Sender: FDA-Public Use
  Company Number: CA-JNJFOC-20130407178

PATIENT
  Sex: Female
  Weight: 114 kg

DRUGS (2)
  1. SIMPONI [Suspect]
     Indication: PRODUCT USED FOR UNKNOWN INDICATION
     Route: 058
     Dates: start: 2012
  2. SIMPONI [Suspect]
     Indication: PRODUCT USED FOR UNKNOWN INDICATION
     Route: 058
     Dates: start: 2012

REACTIONS (6)
  - Paraesthesia [Unknown]
  - Dysstasia [Unknown]
  - Spinal pain [Unknown]
  - Chest discomfort [Unknown]
  - Chills [Unknown]
  - Pyrexia [Unknown]
